FAERS Safety Report 5332100-6 (Version None)
Quarter: 2007Q2

REPORT INFORMATION
  Report Type: 
  Country: None (occurrence: None)
  Receive Date: 20070521
  Receipt Date: 20070511
  Transmission Date: 20071010
  Serious: Yes (Other)
  Sender: FDA-Public Use
  Company Number: TOR 2007-0011

PATIENT
  Age: 82 Year
  Sex: Female

DRUGS (1)
  1. FARESTON [Suspect]
     Indication: BREAST CANCER
     Dosage: 40 MG
     Route: 048
     Dates: start: 20060901

REACTIONS (2)
  - EOSINOPHIL COUNT INCREASED [None]
  - HEPATOCELLULAR DAMAGE [None]
